FAERS Safety Report 4921443-3 (Version None)
Quarter: 2006Q1

REPORT INFORMATION
  Report Type: 
  Country: None (occurrence: None)
  Receive Date: 20060222
  Receipt Date: 20060222
  Transmission Date: 20060701
  Serious: Yes (Other)
  Sender: FDA-Public Use
  Company Number: None

PATIENT
  Age: 69 Year
  Sex: Female
  Weight: 53.5244 kg

DRUGS (8)
  1. POTASSIUM CHLORIDE [Suspect]
     Indication: BLOOD POTASSIUM DECREASED
     Dosage: 10 MEQ  Q1H X 2 DOSES   EPIDURAL
     Route: 008
     Dates: start: 20060220, end: 20060220
  2. UNASYN [Concomitant]
  3. COREG [Concomitant]
  4. LISINOPRIL [Concomitant]
  5. ASPIRIN [Concomitant]
  6. BUPIVACAINE [Concomitant]
  7. FENTANYL CITRATE [Concomitant]
  8. D5 1/2 NS WITH KCL [Concomitant]

REACTIONS (2)
  - INCORRECT ROUTE OF DRUG ADMINISTRATION [None]
  - MEDICATION ERROR [None]
